FAERS Safety Report 8107398-1 (Version None)
Quarter: 2012Q1

REPORT INFORMATION
  Report Type: 
  Country: None (occurrence: None)
  Receive Date: 20120202
  Receipt Date: 20120126
  Transmission Date: 20120608
  Serious: Yes (Hospitalization)
  Sender: FDA-Public Use
  Company Number: IE-MEDIMMUNE-MEDI-0014635

PATIENT
  Sex: Male

DRUGS (4)
  1. KAPSOVIT [Concomitant]
  2. SYNAGIS [Suspect]
     Route: 030
     Dates: start: 20111102, end: 20111102
  3. SPIRONOLACTONE [Concomitant]
  4. FERROUS SULFATE TAB [Concomitant]

REACTIONS (3)
  - RESPIRATORY SYNCYTIAL VIRUS INFECTION [None]
  - PNEUMONIA [None]
  - BRONCHIOLITIS [None]
